FAERS Safety Report 23660118 (Version 12)
Quarter: 2025Q4

REPORT INFORMATION
  Report Type: Spontaneous
  Country: JP (occurrence: JP)
  Receive Date: 20240321
  Receipt Date: 20251201
  Transmission Date: 20260118
  Serious: Yes (Death, Life-Threatening, Hospitalization, Other)
  Sender: ALEXION PHARMACEUTICALS
  Company Number: 2024A066528

PATIENT
  Age: 65 Year
  Sex: Male

DRUGS (3)
  1. IMFINZI [Suspect]
     Active Substance: DURVALUMAB
     Indication: Hepatocellular carcinoma
     Dosage: 1500 MILLIGRAM, Q4W
     Dates: start: 20240226, end: 20240226
  2. IMJUDO [Suspect]
     Active Substance: TREMELIMUMAB\TREMELIMUMAB-ACTL
     Indication: Hepatocellular carcinoma
     Dosage: 300 MILLIGRAM
     Dates: start: 20240226, end: 20240226
  3. LENVATINIB MESYLATE [Concomitant]
     Active Substance: LENVATINIB MESYLATE
     Indication: Hepatocellular carcinoma
     Dosage: UNK
     Route: 065

REACTIONS (7)
  - Immune-mediated myocarditis [Fatal]
  - Cellulitis [Fatal]
  - Laryngopharyngitis [Recovering/Resolving]
  - Cardiac failure [Unknown]
  - Immune-mediated pancreatitis [Unknown]
  - Parotitis [Unknown]
  - Septic shock [Unknown]

NARRATIVE: CASE EVENT DATE: 20240309
